FAERS Safety Report 10290082 (Version 3)
Quarter: 2015Q2

REPORT INFORMATION
  Report Type: Spontaneous
  Country: US (occurrence: None)
  Receive Date: 20120817
  Receipt Date: 20150506
  Transmission Date: 20150821
  Serious: Yes (Hospitalization, Other)
  Sender: FDA-Public Use
  Company Number: ADR-2012-00845

PATIENT
  Sex: Male

DRUGS (2)
  1. ORAL BACLOFEN [Suspect]
     Active Substance: BACLOFEN
  2. LIORESAL [Suspect]
     Active Substance: BACLOFEN
     Indication: MUSCLE SPASTICITY
     Dosage: SEE B5

REACTIONS (17)
  - Implant site mass [None]
  - Unevaluable event [None]
  - Insomnia [None]
  - Cerebrospinal fluid leakage [None]
  - Device kink [None]
  - Tremor [None]
  - Loss of consciousness [None]
  - Headache [None]
  - Muscle tightness [None]
  - Drug withdrawal syndrome [None]
  - Post lumbar puncture syndrome [None]
  - Flatulence [None]
  - No therapeutic response [None]
  - Scoliosis [None]
  - Incorrect dose administered by device [None]
  - Intracranial hypotension [None]
  - Muscle spasticity [None]
